FAERS Safety Report 5951917-8 (Version None)
Quarter: 2008Q4

REPORT INFORMATION
  Report Type: 
  Country: None (occurrence: None)
  Receive Date: 20081113
  Receipt Date: 20081029
  Transmission Date: 20090506
  Serious: Yes (Hospitalization, Other)
  Sender: FDA-Public Use
  Company Number: US-ELI_LILLY_AND_COMPANY-US200807006035

PATIENT
  Age: 26 Year
  Sex: Female

DRUGS (4)
  1. CYMBALTA [Suspect]
     Indication: DEPRESSION
     Dosage: 30 MG, DAILY (1/D)
     Dates: start: 20080301, end: 20080710
  2. SYNTHROID [Concomitant]
     Indication: HYPOTHYROIDISM
     Dosage: 1 D/F, UNK
  3. BETAFERON [Concomitant]
     Indication: MULTIPLE SCLEROSIS
     Dosage: 1 D/F, UNK
     Dates: end: 20080301
  4. COPAXONE [Concomitant]
     Dosage: UNK, UNK
     Dates: start: 20080301, end: 20080710

REACTIONS (5)
  - ALANINE AMINOTRANSFERASE INCREASED [None]
  - ASPARTATE AMINOTRANSFERASE INCREASED [None]
  - BLOOD BILIRUBIN INCREASED [None]
  - DRUG INTERACTION [None]
  - JAUNDICE [None]
